FAERS Safety Report 4644779-2 (Version None)
Quarter: 2005Q2

REPORT INFORMATION
  Report Type: 
  Country: None (occurrence: None)
  Receive Date: 20050426
  Receipt Date: 20050415
  Transmission Date: 20051028
  Serious: Yes (Hospitalization)
  Sender: FDA-Public Use
  Company Number: US-NOVOPROD-243568

PATIENT
  Age: 9 Year
  Sex: Female
  Weight: 25 kg

DRUGS (5)
  1. NORDITROPIN CARTRIDGES [Suspect]
     Indication: BONE DENSITY DECREASED
     Dosage: .7 MG, QD
     Route: 058
     Dates: start: 20040401
  2. DDAVP [Concomitant]
     Indication: ILL-DEFINED DISORDER
     Dosage: .8 UG, QD
     Route: 058
  3. PHENOBARBITAL [Concomitant]
     Indication: ILL-DEFINED DISORDER
     Dosage: UNK, BID
  4. KEPPRA [Concomitant]
     Indication: ILL-DEFINED DISORDER
     Dosage: 750 MG, BID
     Route: 048
  5. SYNTHROID [Concomitant]
     Indication: HYPOTHYROIDISM
     Dosage: 50 UG, UNK

REACTIONS (2)
  - DEHYDRATION [None]
  - PANCREATITIS [None]
